FAERS Safety Report 21764152 (Version 1)
Quarter: 2022Q4

REPORT INFORMATION
  Report Type: Report from Study
  Country: EC (occurrence: None)
  Receive Date: 20221222
  Receipt Date: 20221222
  Transmission Date: 20230112
  Serious: Yes (Other)
  Sender: FDA-Public Use
  Company Number: EC-Merck Healthcare KGaA-9373744

PATIENT
  Age: 51 Year
  Sex: Male

DRUGS (1)
  1. REBIF [Suspect]
     Active Substance: INTERFERON BETA-1A
     Indication: Multiple sclerosis
     Route: 058
     Dates: start: 20101112

REACTIONS (1)
  - Gallbladder operation [Recovering/Resolving]

NARRATIVE: CASE EVENT DATE: 20221018
